FAERS Safety Report 10163384 (Version 3)
Quarter: 2014Q3

REPORT INFORMATION
  Report Type: Report from Study
  Country: BR (occurrence: BR)
  Receive Date: 20140509
  Receipt Date: 20140715
  Transmission Date: 20150326
  Serious: Yes (Hospitalization, Other)
  Sender: FDA-Public Use
  Company Number: PHHY2013BR120079

PATIENT
  Sex: Female
  Weight: 68 kg

DRUGS (7)
  1. OSTEO-BI-FLEX [Concomitant]
     Dosage: UNK UKN, UNK
     Dates: start: 2012
  2. CALCIUM [Concomitant]
     Active Substance: CALCIUM
     Indication: OSTEOPOROSIS
  3. ACLASTA [Suspect]
     Active Substance: ZOLEDRONIC ACID
     Indication: OSTEOPOROSIS
     Dosage: 1 APPLICATION (5 MG) YEARLY
     Route: 042
     Dates: start: 201211
  4. ACLASTA [Suspect]
     Active Substance: ZOLEDRONIC ACID
     Dosage: 1 APPLICATION (5 MG) YEARLY
     Route: 042
     Dates: start: 2013
  5. PURAN [Concomitant]
     Active Substance: LEVOTHYROXINE SODIUM
     Indication: THYROID DISORDER
     Dosage: 1 DF, DAILY
     Route: 048
     Dates: start: 1992
  6. PURAN [Concomitant]
     Active Substance: LEVOTHYROXINE SODIUM
     Indication: THYROIDECTOMY
  7. CALCIUM [Concomitant]
     Active Substance: CALCIUM
     Indication: OSTEOPENIA
     Dosage: 1 DF, QW
     Route: 048
     Dates: start: 201404

REACTIONS (20)
  - Pyrexia [Recovering/Resolving]
  - Temporomandibular joint syndrome [Recovering/Resolving]
  - Bruxism [Recovering/Resolving]
  - Ocular hyperaemia [Recovering/Resolving]
  - Eye burns [Unknown]
  - Visual acuity reduced [Unknown]
  - Pain [Recovering/Resolving]
  - Photophobia [Unknown]
  - Lacrimation increased [Unknown]
  - Intraocular pressure increased [Unknown]
  - Dysstasia [Recovering/Resolving]
  - Feeling abnormal [Recovering/Resolving]
  - Vomiting [Recovering/Resolving]
  - Oral pain [Recovering/Resolving]
  - Foreign body sensation in eyes [Unknown]
  - Bone pain [Recovering/Resolving]
  - Eye inflammation [Unknown]
  - Eye pruritus [Unknown]
  - Vision blurred [Recovering/Resolving]
  - Conjunctivitis [Recovering/Resolving]
